FAERS Safety Report 5146162-2 (Version None)
Quarter: 2006Q4

REPORT INFORMATION
  Report Type: 
  Country: None (occurrence: None)
  Receive Date: 20061108
  Receipt Date: 20061016
  Transmission Date: 20070319
  Serious: Yes (Death, Life-Threatening)
  Sender: FDA-Public Use
  Company Number: JP-ROCHE-467279

PATIENT
  Age: 65 Year
  Sex: Female

DRUGS (12)
  1. PANALDINE [Suspect]
     Indication: ARTERIOSCLEROSIS OBLITERANS
     Dosage: INIDCATION ALSO REPORTED AS STENT PLACEMENT
     Route: 048
     Dates: start: 20060929, end: 20061003
  2. LANSOPRAZOLE [Suspect]
     Indication: REFLUX OESOPHAGITIS
     Route: 048
     Dates: start: 20060904, end: 20061003
  3. RENIVACE [Concomitant]
     Indication: HYPERTENSION
     Route: 048
     Dates: start: 20060830, end: 20060922
  4. POLARAMINE [Concomitant]
     Route: 048
     Dates: start: 20060916, end: 20061003
  5. ASPIRIN [Concomitant]
     Indication: CORONARY ARTERIAL STENT INSERTION
     Route: 048
     Dates: start: 20061001, end: 20061003
  6. PREDONINE [Concomitant]
     Indication: RHEUMATOID ARTHRITIS
     Route: 048
     Dates: end: 20061003
  7. LAC B [Concomitant]
     Route: 048
     Dates: end: 20061003
  8. BLOPRESS [Concomitant]
     Indication: HYPERTENSION
     Route: 048
     Dates: end: 20061003
  9. PERDIPINE [Concomitant]
     Indication: HYPERTENSION
     Dosage: GIVEN ON DIALYTIC DAY.
     Route: 048
     Dates: end: 20061003
  10. ATROPINE [Concomitant]
     Dates: start: 20061002
  11. PENTAZOCINE LACTATE [Concomitant]
     Indication: PAIN
     Dates: start: 20061002
  12. LOXONIN [Concomitant]
     Indication: PAIN
     Route: 048
     Dates: start: 20061002

REACTIONS (20)
  - ACIDOSIS [None]
  - BLOOD PRESSURE DIASTOLIC DECREASED [None]
  - BLOOD PRESSURE INCREASED [None]
  - CYANOSIS [None]
  - HAEMATOMA [None]
  - HAEMODIALYSIS [None]
  - HAEMOGLOBIN DECREASED [None]
  - HEADACHE [None]
  - HEPATIC FAILURE [None]
  - HEPATIC NECROSIS [None]
  - HYPOGLYCAEMIA [None]
  - LIVER DISORDER [None]
  - LOSS OF CONSCIOUSNESS [None]
  - MULTI-ORGAN FAILURE [None]
  - NAUSEA [None]
  - PULSE PRESSURE DECREASED [None]
  - RED BLOOD CELL COUNT DECREASED [None]
  - SHOCK [None]
  - SYNCOPE VASOVAGAL [None]
  - THROMBOTIC THROMBOCYTOPENIC PURPURA [None]
